FAERS Safety Report 4924244-5 (Version None)
Quarter: 2006Q1

REPORT INFORMATION
  Report Type: 
  Country: None (occurrence: None)
  Receive Date: 20060227
  Receipt Date: 20060103
  Transmission Date: 20060701
  Serious: No
  Sender: FDA-Public Use
  Company Number: US-GLAXOSMITHKLINE-A0587545A

PATIENT
  Age: 34 Year
  Sex: Female

DRUGS (1)
  1. WELLBUTRIN XL [Suspect]
     Indication: DEPRESSION
     Dosage: 150MG TWICE PER DAY
     Route: 048
     Dates: start: 20050601

REACTIONS (4)
  - HEART RATE INCREASED [None]
  - HYPERHIDROSIS [None]
  - MEDICATION ERROR [None]
  - NECK PAIN [None]
